FAERS Safety Report 5717140-7 (Version None)
Quarter: 2008Q2

REPORT INFORMATION
  Report Type: 
  Country: None (occurrence: None)
  Receive Date: 20080423
  Receipt Date: 20080410
  Transmission Date: 20081010
  Serious: Yes (Other)
  Sender: FDA-Public Use
  Company Number: 2007336210

PATIENT
  Age: 79 Year
  Sex: Female
  Weight: 54.4316 kg

DRUGS (6)
  1. NEOSPORIN PLUS PAIN RELIEF MAXIMUM STRENGTH (POLYMYXIN B SULFATE, NEOM [Suspect]
     Indication: HEAD INJURY
     Dosage: TOPICAL
     Route: 061
     Dates: start: 20070101, end: 20071118
  2. MAXZIDE [Concomitant]
  3. ACTONEL [Concomitant]
  4. MULTIVITAMIN [Concomitant]
  5. CALCIUM WITH VITAMIN D (CALCIUM PHOSPHATE, CALCIUM SODIUM LACTATE, ERG [Concomitant]
  6. FISH OIL (FISH OIL) [Concomitant]

REACTIONS (11)
  - EYE PAIN [None]
  - EYE PRURITUS [None]
  - EYE SWELLING [None]
  - INSOMNIA [None]
  - MULTIPLE ALLERGIES [None]
  - OCULAR HYPERAEMIA [None]
  - PAIN [None]
  - PEAU D'ORANGE [None]
  - SWELLING FACE [None]
  - WEIGHT DECREASED [None]
  - WOUND INFECTION [None]
